FAERS Safety Report 10728222 (Version 3)
Quarter: 2015Q4

REPORT INFORMATION
  Report Type: Spontaneous
  Country: DK (occurrence: DK)
  Receive Date: 20150121
  Receipt Date: 20151009
  Transmission Date: 20160304
  Serious: Yes (Hospitalization, Disabling, Other)
  Sender: FDA-Public Use
  Company Number: DK-ALLERGAN-1500650US

PATIENT
  Age: 70 Year
  Sex: Female
  Weight: 85 kg

DRUGS (17)
  1. SAROTEN [Concomitant]
     Active Substance: AMITRIPTYLINE
     Indication: NEURALGIA
     Dates: start: 19940101
  2. CALCIUM [Concomitant]
     Active Substance: CALCIUM
     Indication: NEURALGIA
  3. HUMIRA [Concomitant]
     Active Substance: ADALIMUMAB
     Indication: MENINGITIS
     Dosage: UNK
     Dates: start: 201407
  4. ANAFRANIL [Concomitant]
     Active Substance: CLOMIPRAMINE HYDROCHLORIDE
     Indication: NEURALGIA
     Dosage: UNK
     Dates: start: 19940101
  5. DEXAMETHASONE. [Suspect]
     Active Substance: DEXAMETHASONE
     Indication: PRODUCT USED FOR UNKNOWN INDICATION
     Dosage: UNK
     Dates: start: 2013, end: 2013
  6. METEX [Suspect]
     Active Substance: METFORMIN HYDROCHLORIDE
     Indication: RHEUMATOID ARTHRITIS
     Dosage: 10 MG, Q WEEK
     Dates: start: 201204, end: 201306
  7. VITAMIN D [Concomitant]
     Active Substance: CHOLECALCIFEROL
     Indication: OSTEOPOROSIS PROPHYLAXIS
     Dates: start: 20120101
  8. CALCIUM [Concomitant]
     Active Substance: CALCIUM
     Indication: OSTEOPOROSIS PROPHYLAXIS
     Dosage: UNK
     Dates: start: 19940101
  9. KETOGAN [Concomitant]
     Active Substance: KETOBEMIDONE HYDROCHLORIDE
     Indication: NEURALGIA
     Dates: start: 19940101
  10. PINEX [Concomitant]
     Active Substance: ACETAMINOPHEN
     Indication: NEURALGIA
     Dosage: UNK
     Dates: start: 19940101
  11. PREDNISOLON [Concomitant]
     Active Substance: PREDNISOLONE
     Dosage: 17 MG, UNK
     Dates: start: 20130814
  12. METEX [Suspect]
     Active Substance: METFORMIN HYDROCHLORIDE
     Dosage: 25 UNK, UNK
     Dates: start: 20121003
  13. CONTALGIN [Concomitant]
     Active Substance: MORPHINE SULFATE
     Indication: NEURALGIA
     Dates: start: 19940101
  14. RIVOTRIL [Concomitant]
     Active Substance: CLONAZEPAM
     Indication: NEURALGIA
     Dates: start: 19940101
  15. TILCOTIL [Concomitant]
     Active Substance: TENOXICAM
     Indication: NEURALGIA
     Dates: start: 19940101
  16. CHLORZOXAZONE. [Concomitant]
     Active Substance: CHLORZOXAZONE
     Indication: NEURALGIA
     Dates: start: 19940101
  17. PREDNISOLON [Concomitant]
     Active Substance: PREDNISOLONE
     Indication: RHEUMATOID ARTHRITIS
     Dosage: UNK
     Dates: start: 201204

REACTIONS (18)
  - Oxygen consumption decreased [Unknown]
  - Memory impairment [Unknown]
  - Illiteracy [Unknown]
  - Dyspnoea [Unknown]
  - Pneumonia [Unknown]
  - General physical health deterioration [Unknown]
  - Abasia [Unknown]
  - Pulmonary fibrosis [Not Recovered/Not Resolved]
  - Cerebral thrombosis [Unknown]
  - Depression [Unknown]
  - Hypoxia [Unknown]
  - Pneumonia pneumococcal [Unknown]
  - Pulmonary function test decreased [Not Recovered/Not Resolved]
  - Alveolitis allergic [Unknown]
  - Hemianopia [Unknown]
  - Interstitial lung disease [Unknown]
  - Meningitis pneumococcal [Unknown]
  - Hemiparesis [Unknown]

NARRATIVE: CASE EVENT DATE: 20130515
